FAERS Safety Report 7392820-9 (Version None)
Quarter: 2011Q2

REPORT INFORMATION
  Report Type: 
  Country: None (occurrence: None)
  Receive Date: 20110404
  Receipt Date: 20110321
  Transmission Date: 20111010
  Serious: Yes (Hospitalization)
  Sender: FDA-Public Use
  Company Number: US-ACTELION-A-NJ2011-44366

PATIENT

DRUGS (2)
  1. TRACLEER [Suspect]
     Indication: PULMONARY ARTERIAL HYPERTENSION
     Dosage: UNK
     Route: 048
     Dates: start: 20090528
  2. CALCIUM CHANNEL BLOCKERS [Concomitant]

REACTIONS (4)
  - POST PROCEDURAL COMPLICATION [None]
  - SURGERY [None]
  - OVARIAN CANCER [None]
  - ABDOMINAL CAVITY DRAINAGE [None]
